FAERS Safety Report 9052721 (Version 1)
Quarter: 2013Q1

REPORT INFORMATION
  Report Type: Other
  Country: US (occurrence: US)
  Receive Date: 20130207
  Receipt Date: 20130207
  Transmission Date: 20140127
  Serious: Yes (Death, Hospitalization)
  Sender: FDA-Public Use
  Company Number: US-SHIRE-ALL1-2012-06458

PATIENT
  Age: 67 None
  Sex: Male
  Weight: 73.92 kg

DRUGS (1)
  1. LIALDA [Suspect]
     Indication: COLITIS ULCERATIVE
     Dosage: 1.2 G, 2X/DAY:BID
     Route: 048
     Dates: start: 201203

REACTIONS (3)
  - Death [Fatal]
  - Hospitalisation [Not Recovered/Not Resolved]
  - Drug prescribing error [Not Recovered/Not Resolved]
